FAERS Safety Report 7806237-3 (Version None)
Quarter: 2011Q4

REPORT INFORMATION
  Report Type: 
  Country: None (occurrence: None)
  Receive Date: 20111011
  Receipt Date: 20110926
  Transmission Date: 20120403
  Serious: Yes (Other)
  Sender: FDA-Public Use
  Company Number: US-TYCO HEALTHCARE/MALLINCKRODT-T201101136

PATIENT
  Age: 70 Year
  Sex: Female

DRUGS (4)
  1. SODIUM BICARBONATE DALMAU [Suspect]
     Indication: ANGIOPLASTY
     Dosage: 3 ML /KG /HOUR, ADMINISTERED ONE HOUR BEFORE PROCEDURE
  2. OPTIRAY 160 [Suspect]
     Indication: ANGIOPLASTY
     Dosage: 10 ML, SINGLE
  3. SODIUM BICARBONATE DALMAU [Suspect]
     Dosage: 1 ML/KG/HOUR FOR THREE HOURS POSTPROCEDURE
  4. SODIUM CHLORIDE [Suspect]
     Indication: ANGIOPLASTY
     Dosage: UNK

REACTIONS (1)
  - RENAL FAILURE ACUTE [None]
